FAERS Safety Report 12521577 (Version 1)
Quarter: 2016Q3

REPORT INFORMATION
  Report Type: Report from Study
  Country: US (occurrence: US)
  Receive Date: 20160701
  Receipt Date: 20160701
  Transmission Date: 20161109
  Serious: Yes (Other)
  Sender: FDA-Public Use
  Company Number: US-AMGEN-USASL2016084001

PATIENT
  Age: 40 Year
  Sex: Female

DRUGS (1)
  1. ENBREL [Suspect]
     Active Substance: ETANERCEPT
     Indication: RHEUMATOID ARTHRITIS
     Dosage: UNK UNK, QWK
     Route: 065
     Dates: start: 20160524

REACTIONS (5)
  - Malaise [Unknown]
  - Vomiting [Unknown]
  - Delirium [Unknown]
  - Asthenia [Unknown]
  - Arthropod bite [Unknown]

NARRATIVE: CASE EVENT DATE: 2016
